FAERS Safety Report 8103934-X (Version None)
Quarter: 2012Q1

REPORT INFORMATION
  Report Type: 
  Country: None (occurrence: None)
  Receive Date: 20120201
  Receipt Date: 20111109
  Transmission Date: 20120608
  Serious: Yes (Hospitalization, Other)
  Sender: FDA-Public Use
  Company Number: PL-ROCHE-1010199

PATIENT
  Sex: Male

DRUGS (5)
  1. CYCLOPHOSPHAMIDE [Concomitant]
     Route: 042
     Dates: start: 20071018
  2. VINCRISTINE [Concomitant]
     Indication: DIFFUSE LARGE B-CELL LYMPHOMA
     Route: 042
     Dates: start: 20071018
  3. PREDNISONE TAB [Concomitant]
     Indication: DIFFUSE LARGE B-CELL LYMPHOMA
     Route: 048
     Dates: start: 20071018
  4. RITUXAN [Suspect]
     Indication: PRODUCT USED FOR UNKNOWN INDICATION
     Dosage: FORM: INFUSIONTHE PATIENT RECEIVED FULL COURSE OF RITUXIMAB (6 INFUSIONS)
     Route: 042
     Dates: start: 20071018
  5. DOXORUBICIN HCL [Concomitant]
     Indication: DIFFUSE LARGE B-CELL LYMPHOMA
     Dosage: DRUG NAME: DOXORUBICYNA
     Route: 042
     Dates: start: 20071018

REACTIONS (7)
  - ABDOMINAL PAIN [None]
  - VOLVULUS OF SMALL BOWEL [None]
  - ADHESION [None]
  - PERITONEAL DISORDER [None]
  - ABSCESS [None]
  - ILEAL PERFORATION [None]
  - URINARY RETENTION [None]
